FAERS Safety Report 7717584-8 (Version None)
Quarter: 2011Q3

REPORT INFORMATION
  Report Type: 
  Country: None (occurrence: None)
  Receive Date: 20110830
  Receipt Date: 20110824
  Transmission Date: 20111222
  Serious: Yes (Other)
  Sender: FDA-Public Use
  Company Number: CH-SANOFI-AVENTIS-2011SA054861

PATIENT
  Age: 50 Year
  Sex: Male
  Weight: 73 kg

DRUGS (2)
  1. CEFUROXIME [Suspect]
     Indication: INFECTION PROPHYLAXIS
     Route: 041
     Dates: start: 20110704, end: 20110704
  2. ENOXAPARIN SODIUM [Suspect]
     Route: 058
     Dates: start: 20110629, end: 20110706

REACTIONS (2)
  - NAUSEA [None]
  - MIXED LIVER INJURY [None]
